FAERS Safety Report 5482858-0 (Version None)
Quarter: 2007Q4

REPORT INFORMATION
  Report Type: 
  Country: None (occurrence: None)
  Receive Date: 20071011
  Receipt Date: 20071001
  Transmission Date: 20080405
  Serious: Yes (Other)
  Sender: FDA-Public Use
  Company Number: US-PFIZER INC-2007082151

PATIENT
  Sex: Female

DRUGS (3)
  1. XALATAN [Suspect]
     Indication: GLAUCOMA
     Route: 031
  2. BENADRYL [Suspect]
     Indication: PRURITUS ALLERGIC
  3. PROTONIX [Concomitant]

REACTIONS (9)
  - CORNEAL DISORDER [None]
  - DRY EYE [None]
  - EYE IRRITATION [None]
  - EYE MOVEMENT DISORDER [None]
  - EYE PAIN [None]
  - IRIS DISORDER [None]
  - OCULAR HYPERAEMIA [None]
  - PHOTOPHOBIA [None]
  - RASH [None]
